FAERS Safety Report 16187543 (Version 1)
Quarter: 2019Q2

REPORT INFORMATION
  Report Type: Spontaneous
  Country: TR (occurrence: TR)
  Receive Date: 20190412
  Receipt Date: 20190412
  Transmission Date: 20190711
  Serious: Yes (Hospitalization, Other)
  Sender: FDA-Public Use
  Company Number: TR-INVENTIA-000285

PATIENT
  Age: 63 Year
  Sex: Female

DRUGS (2)
  1. INSULIN [Concomitant]
     Active Substance: INSULIN NOS
     Indication: DIABETES MELLITUS
     Dosage: 20 UNITS
  2. DULOXETINE. [Suspect]
     Active Substance: DULOXETINE
     Indication: MAJOR DEPRESSION
     Dosage: RAISED TO 60 MG/D.

REACTIONS (3)
  - Uraemic encephalopathy [Unknown]
  - Urinary retention [Recovered/Resolved]
  - Acute kidney injury [Unknown]
